FAERS Safety Report 15089947 (Version 1)
Quarter: 2018Q2

REPORT INFORMATION
  Report Type: Spontaneous
  Country: US (occurrence: US)
  Receive Date: 20180629
  Receipt Date: 20180629
  Transmission Date: 20180711
  Serious: No
  Sender: FDA-Public Use
  Company Number: US-BIOGEN-2014BI077378

PATIENT
  Age: 56 Year
  Sex: Female

DRUGS (7)
  1. AVONEX [Suspect]
     Active Substance: INTERFERON BETA-1A
     Indication: MULTIPLE SCLEROSIS
     Route: 030
     Dates: start: 20010920
  2. AVONEX [Suspect]
     Active Substance: INTERFERON BETA-1A
     Route: 030
     Dates: start: 20080720
  3. AVONEX [Suspect]
     Active Substance: INTERFERON BETA-1A
     Route: 030
     Dates: start: 20130928, end: 20141001
  4. AVONEX [Suspect]
     Active Substance: INTERFERON BETA-1A
     Route: 030
     Dates: start: 20130830
  5. AVONEX [Suspect]
     Active Substance: INTERFERON BETA-1A
     Route: 065
     Dates: start: 20080720
  6. AVONEX [Suspect]
     Active Substance: INTERFERON BETA-1A
     Route: 030
     Dates: end: 20010920
  7. AVONEX [Suspect]
     Active Substance: INTERFERON BETA-1A
     Route: 065

REACTIONS (17)
  - Multiple allergies [Not Recovered/Not Resolved]
  - Memory impairment [Unknown]
  - Drug ineffective [Recovered/Resolved]
  - Respiratory disorder [Unknown]
  - Coeliac disease [Unknown]
  - Gluten sensitivity [Not Recovered/Not Resolved]
  - Pyrexia [Unknown]
  - Mental impairment [Not Recovered/Not Resolved]
  - Visual impairment [Unknown]
  - Amnesia [Not Recovered/Not Resolved]
  - Lymphopenia [Unknown]
  - Thrombosis [Unknown]
  - Immune system disorder [Unknown]
  - Gastrooesophageal reflux disease [Unknown]
  - Ulcer [Not Recovered/Not Resolved]
  - Allergic respiratory disease [Unknown]
  - Influenza like illness [Recovered/Resolved]

NARRATIVE: CASE EVENT DATE: 20130928
